FAERS Safety Report 5873330-4 (Version None)
Quarter: 2008Q3

REPORT INFORMATION
  Report Type: 
  Country: None (occurrence: None)
  Receive Date: 20080903
  Receipt Date: 20080827
  Transmission Date: 20090109
  Serious: Yes (Other)
  Sender: FDA-Public Use
  Company Number: 310002J08GRC

PATIENT
  Age: 29 Year
  Sex: Male

DRUGS (5)
  1. GONAL-F [Suspect]
     Dates: end: 20080501
  2. GONAL-F [Suspect]
     Dates: start: 20080701
  3. HYDROCORTISONE [Concomitant]
  4. LEVOTHYROXINE SODIUM [Concomitant]
  5. CALCITRIOL [Concomitant]

REACTIONS (1)
  - TRANSAMINASES INCREASED [None]
